FAERS Safety Report 21442533 (Version 1)
Quarter: 2022Q4

REPORT INFORMATION
  Report Type: Spontaneous
  Country: US (occurrence: None)
  Receive Date: 20221010
  Receipt Date: 20221010
  Transmission Date: 20230113
  Serious: No
  Sender: FDA-Public Use
  Company Number: None

PATIENT
  Age: 51 Year
  Sex: Male

DRUGS (4)
  1. HUMIRA [Suspect]
     Active Substance: ADALIMUMAB
     Indication: Central nervous system infection
     Dosage: INJECT 40MG SUBCUTANEOUSLY EVERY 2 WEEKS AS DIRECTED.     ?
     Route: 058
     Dates: start: 202207
  2. HUMIRA [Suspect]
     Active Substance: ADALIMUMAB
     Indication: HIV infection
  3. RITONAVIR [Suspect]
     Active Substance: RITONAVIR
     Indication: Central nervous system infection
     Dosage: TAKE 1 TABLET BY MOUTH TWICE  DAILY  AS DIRECTED   ?
     Route: 048
     Dates: start: 202208
  4. RITONAVIR [Suspect]
     Active Substance: RITONAVIR
     Indication: HIV infection

REACTIONS (3)
  - Rash [None]
  - Eczema [None]
  - Therapy non-responder [None]
